FAERS Safety Report 7830191-1 (Version None)
Quarter: 2011Q4

REPORT INFORMATION
  Report Type: 
  Country: None (occurrence: None)
  Receive Date: 20111021
  Receipt Date: 20111012
  Transmission Date: 20120403
  Serious: Yes (Hospitalization, Other)
  Sender: FDA-Public Use
  Company Number: PHEH2011US03044

PATIENT
  Sex: Female
  Weight: 74 kg

DRUGS (17)
  1. EXJADE [Suspect]
     Indication: HAEMOCHROMATOSIS
     Dosage: 1500 MG, QD
     Route: 048
     Dates: start: 20060810, end: 20110506
  2. EXJADE [Suspect]
     Indication: IRON OVERLOAD
     Dosage: 1500 MG, QD
     Route: 048
     Dates: start: 20110520
  3. POTASSIUM [Concomitant]
  4. COUMADIN [Concomitant]
  5. DIURETICS [Concomitant]
  6. BUDESONIDE [Concomitant]
  7. VITAMIN D [Concomitant]
  8. CALCIUM CARBONATE [Concomitant]
  9. TRAMADOL HCL [Concomitant]
  10. FOLIC ACID [Concomitant]
  11. EPINEPHRINE [Concomitant]
  12. ANALGESICS [Concomitant]
  13. FEXOFENADINE [Concomitant]
  14. PANTOPRAZOLE [Concomitant]
  15. MULTI-VITAMINS [Concomitant]
  16. ALBUTEROL [Concomitant]
  17. CLONAZEPAM [Concomitant]

REACTIONS (17)
  - MENTAL STATUS CHANGES [None]
  - BLOOD POTASSIUM INCREASED [None]
  - DYSPNOEA [None]
  - BLOOD UREA NITROGEN/CREATININE RATIO INCREASED [None]
  - DEPRESSION [None]
  - DEHYDRATION [None]
  - ASTHENIA [None]
  - HAEMOGLOBIN DECREASED [None]
  - NAUSEA [None]
  - CONFUSIONAL STATE [None]
  - RENAL FAILURE ACUTE [None]
  - AMMONIA INCREASED [None]
  - BLOOD CREATININE INCREASED [None]
  - VOMITING [None]
  - HEPATIC ENCEPHALOPATHY [None]
  - BONE PAIN [None]
  - PNEUMONIA [None]
